FAERS Safety Report 9868223 (Version 3)
Quarter: 2014Q1

REPORT INFORMATION
  Report Type: Spontaneous
  Country: BR (occurrence: BR)
  Receive Date: 20140204
  Receipt Date: 20140224
  Transmission Date: 20141002
  Serious: Yes (Other)
  Sender: FDA-Public Use
  Company Number: PHHY2014BR007595

PATIENT
  Sex: Female

DRUGS (7)
  1. VOLTAREN [Suspect]
     Indication: RHEUMATOID ARTHRITIS
     Dosage: UNK UKN, QD
     Route: 048
  2. VOLTAREN [Suspect]
     Indication: ARTHRALGIA
  3. VOLTAREN [Suspect]
     Indication: TENDONITIS
  4. VOLTAREN [Suspect]
     Indication: BURSITIS
  5. VOLTAREN [Suspect]
     Indication: RHEUMATOID ARTHRITIS
     Dosage: 50 MG, PRN
  6. VOLTAREN [Suspect]
     Indication: TENDONITIS
  7. VOLTAREN [Suspect]
     Indication: BURSITIS

REACTIONS (10)
  - Abasia [Recovered/Resolved]
  - Loose tooth [Recovering/Resolving]
  - Headache [Unknown]
  - Swelling [Recovered/Resolved]
  - Joint swelling [Recovered/Resolved]
  - Gastritis [Recovered/Resolved]
  - Abdominal pain upper [Unknown]
  - Erythema [Recovered/Resolved]
  - Arthralgia [Recovered/Resolved]
  - Drug ineffective [Unknown]
